FAERS Safety Report 25866655 (Version 3)
Quarter: 2025Q4

REPORT INFORMATION
  Report Type: Report from Study
  Country: US (occurrence: US)
  Receive Date: 20250930
  Receipt Date: 20251127
  Transmission Date: 20260117
  Serious: Yes (Other)
  Sender: ABBVIE
  Company Number: US-ABBVIE-6476830

PATIENT
  Age: 77 Year
  Sex: Male

DRUGS (1)
  1. SKYRIZI [Suspect]
     Active Substance: RISANKIZUMAB-RZAA
     Indication: Crohn^s disease
     Route: 058
     Dates: start: 20250118

REACTIONS (9)
  - Lower limb fracture [Unknown]
  - Fall [Recovering/Resolving]
  - Upper limb fracture [Unknown]
  - Hip surgery [Recovering/Resolving]
  - Accident [Unknown]
  - Unevaluable event [Unknown]
  - Fall [Not Recovered/Not Resolved]
  - Incontinence [Not Recovered/Not Resolved]
  - Femur fracture [Unknown]

NARRATIVE: CASE EVENT DATE: 20250101
